FAERS Safety Report 24594683 (Version 3)
Quarter: 2024Q4

REPORT INFORMATION
  Report Type: Spontaneous
  Country: US (occurrence: US)
  Receive Date: 20241108
  Receipt Date: 20241223
  Transmission Date: 20250114
  Serious: No
  Sender: PFIZER
  Company Number: US-PFIZER INC-PV202400144301

PATIENT
  Age: 52 Year
  Sex: Male

DRUGS (1)
  1. INLYTA [Suspect]
     Active Substance: AXITINIB
     Dosage: UNK

REACTIONS (4)
  - Pain [Unknown]
  - Night sweats [Not Recovered/Not Resolved]
  - Fatigue [Not Recovered/Not Resolved]
  - Palmar-plantar erythrodysaesthesia syndrome [Unknown]

NARRATIVE: CASE EVENT DATE: 20240101
